FAERS Safety Report 10900988 (Version 1)
Quarter: 2015Q1

REPORT INFORMATION
  Report Type: Spontaneous
  Country: US (occurrence: None)
  Receive Date: 20150303
  Receipt Date: 20150303
  Transmission Date: 20150721
  Serious: Yes (Other)
  Sender: FDA-Public Use
  Company Number: COM-002952

PATIENT
  Age: 36 Year
  Sex: Female
  Weight: 68.04 kg

DRUGS (1)
  1. WAL-DRYL ALLERGY [Suspect]
     Active Substance: DIPHENHYDRAMINE HYDROCHLORIDE
     Indication: RASH
     Dosage: 2.5 TSPS, EVERY 8 HOURS?FOUR TIMES TOTAL
     Route: 048
     Dates: start: 20150209, end: 20150210

REACTIONS (1)
  - Hypersensitivity [None]

NARRATIVE: CASE EVENT DATE: 20150210
